FAERS Safety Report 9865141 (Version 1)
Quarter: 2014Q1

REPORT INFORMATION
  Report Type: Spontaneous
  Country: US (occurrence: US)
  Receive Date: 20140203
  Receipt Date: 20140203
  Transmission Date: 20141002
  Serious: Yes (Hospitalization)
  Sender: FDA-Public Use
  Company Number: US-CELGENEUS-163-21880-14014690

PATIENT
  Age: 69 Year
  Sex: Male
  Weight: 81.27 kg

DRUGS (12)
  1. REVLIMID [Suspect]
     Indication: MYELODYSPLASTIC SYNDROME
     Dosage: 10 MILLIGRAM
     Route: 048
     Dates: start: 201311, end: 2013
  2. REVLIMID [Suspect]
     Dosage: 10 MILLIGRAM
     Route: 048
     Dates: start: 20131224
  3. ACETAMINOPHEN [Concomitant]
     Indication: PAIN
     Route: 048
  4. ACETAMINOPHEN [Concomitant]
     Indication: PYREXIA
  5. ASPIRINE [Concomitant]
     Indication: ANTIPLATELET THERAPY
     Dosage: 81 MILLIGRAM
     Route: 048
  6. DIGOXIN [Concomitant]
     Indication: ARRHYTHMIA
     Dosage: .25 MILLIGRAM
     Route: 048
  7. LASIX [Concomitant]
     Indication: OEDEMA
     Dosage: 40 MILLIGRAM
     Route: 048
  8. NORCO [Concomitant]
     Indication: PAIN
     Dosage: 5/325MG
     Route: 048
  9. IBUPROFEN [Concomitant]
     Indication: PAIN
     Route: 048
  10. IBUPROFEN [Concomitant]
     Indication: PYREXIA
  11. PRILOSEC [Concomitant]
     Indication: GASTROOESOPHAGEAL REFLUX DISEASE
     Dosage: 40 MILLIGRAM
     Route: 065
  12. KCL [Concomitant]
     Indication: MINERAL SUPPLEMENTATION
     Dosage: 10 MILLIEQUIVALENTS
     Route: 048

REACTIONS (2)
  - Pleural effusion [Recovered/Resolved]
  - Dyspnoea [Recovered/Resolved]
